FAERS Safety Report 6960118-6 (Version None)
Quarter: 2010Q3

REPORT INFORMATION
  Report Type: 
  Country: None (occurrence: None)
  Receive Date: 20100901
  Receipt Date: 20100819
  Transmission Date: 20110219
  Serious: Yes (Other)
  Sender: FDA-Public Use
  Company Number: PHHY2009AU49970

PATIENT
  Sex: Male

DRUGS (1)
  1. GLEEVEC [Suspect]
     Indication: CHRONIC MYELOID LEUKAEMIA
     Dosage: 400 MG, UNK
     Route: 048
     Dates: start: 20070101

REACTIONS (6)
  - APATHY [None]
  - BACK PAIN [None]
  - CONSTIPATION [None]
  - DEPRESSION [None]
  - EPISTAXIS [None]
  - HAEMOPTYSIS [None]
